FAERS Safety Report 15847226 (Version 6)
Quarter: 2019Q2

REPORT INFORMATION
  Report Type: Spontaneous
  Country: CA (occurrence: CA)
  Receive Date: 20190121
  Receipt Date: 20190618
  Transmission Date: 20190711
  Serious: Yes (Hospitalization, Other)
  Sender: FDA-Public Use
  Company Number: CA-CELLTRION INC.-2018CA023639

PATIENT

DRUGS (12)
  1. INFLECTRA [Suspect]
     Active Substance: INFLIXIMAB-DYYB
     Dosage: 10 MG/KG, EVERY 4 WEEKS
     Route: 042
     Dates: start: 201812
  2. PREDNISONE. [Concomitant]
     Active Substance: PREDNISONE
     Dosage: UNK
     Route: 048
     Dates: start: 20181012
  3. CALCIUM [Concomitant]
     Active Substance: CALCIUM
     Dosage: UNK
     Route: 048
  4. INFLECTRA [Suspect]
     Active Substance: INFLIXIMAB-DYYB
     Indication: CROHN^S DISEASE
     Dosage: 10 MG/KG (FOR THE FIRST 2 INFUSIONS)
     Route: 042
     Dates: start: 20181023, end: 20181106
  5. VITAMIN B12 [Concomitant]
     Active Substance: CYANOCOBALAMIN
     Dosage: 1200 MG, 1X/DAY
     Route: 048
  6. INFLECTRA [Suspect]
     Active Substance: INFLIXIMAB-DYYB
     Dosage: 600 MG, UNK
     Route: 042
     Dates: start: 20181106
  7. METHOTREXATE. [Concomitant]
     Active Substance: METHOTREXATE
     Dosage: UNK
  8. INFLECTRA [Suspect]
     Active Substance: INFLIXIMAB-DYYB
     Dosage: 10 MG/KG, THEN EVERY 4 WEEKS
     Route: 042
     Dates: start: 20190111
  9. INFLECTRA [Suspect]
     Active Substance: INFLIXIMAB-DYYB
     Dosage: 5 MG/KG, Q (EVERY) 0, 2, 6 WEEKS, THEN EVERY 8 WEEKS (MAINTENANCE)
     Route: 042
  10. SYNTHROID [Concomitant]
     Active Substance: LEVOTHYROXINE SODIUM
     Dosage: 0.1 MG, 1X/DAY
     Route: 048
  11. VITAMIN D [COLECALCIFEROL] [Concomitant]
     Active Substance: CHOLECALCIFEROL
     Dosage: 10000 IU, WEEKLY
     Route: 048
  12. PAROXETINE. [Concomitant]
     Active Substance: PAROXETINE
     Dosage: UNK
     Route: 048
     Dates: start: 20181012

REACTIONS (21)
  - Bacterial infection [Unknown]
  - Product use issue [Unknown]
  - Fatigue [Unknown]
  - Small intestine carcinoma [Unknown]
  - Infusion related reaction [Unknown]
  - Gait disturbance [Unknown]
  - Pyrexia [Unknown]
  - Incorrect dose administered [Unknown]
  - Pain [Unknown]
  - Dyspnoea [Not Recovered/Not Resolved]
  - General physical health deterioration [Unknown]
  - Drug ineffective [Unknown]
  - Nausea [Unknown]
  - Decreased appetite [Recovered/Resolved]
  - Abdominal pain [Recovered/Resolved]
  - Abdominal distension [Unknown]
  - Tachycardia [Unknown]
  - Hypotension [Unknown]
  - Condition aggravated [Not Recovered/Not Resolved]
  - Diarrhoea [Unknown]
  - Faeces soft [Unknown]

NARRATIVE: CASE EVENT DATE: 20181106
